FAERS Safety Report 14345193 (Version 3)
Quarter: 2018Q1

REPORT INFORMATION
  Report Type: Report from Study
  Country: CA (occurrence: CA)
  Receive Date: 20180103
  Receipt Date: 20180130
  Transmission Date: 20180509
  Serious: Yes (Disabling, Other)
  Sender: FDA-Public Use
  Company Number: CA-AMGEN-CANSL2017192649

PATIENT
  Age: 47 Year
  Sex: Female
  Weight: 85 kg

DRUGS (2)
  1. KYPROLIS [Suspect]
     Active Substance: CARFILZOMIB
     Indication: PLASMA CELL MYELOMA
     Dosage: 54 MG, UNK
     Route: 042
     Dates: start: 20171204
  2. KYPROLIS [Suspect]
     Active Substance: CARFILZOMIB
     Dosage: 54 MG, 2 DAYS A WEEK FOR THREE WEEKS
     Route: 042

REACTIONS (13)
  - Nausea [Recovering/Resolving]
  - Malaise [Recovering/Resolving]
  - Infusion site irritation [Recovering/Resolving]
  - Infusion site erythema [Unknown]
  - Appetite disorder [Recovering/Resolving]
  - Heart rate increased [Recovering/Resolving]
  - Anxiety [Recovering/Resolving]
  - Fatigue [Recovering/Resolving]
  - Pain [Recovering/Resolving]
  - Somnolence [Recovering/Resolving]
  - Dyspnoea [Recovered/Resolved]
  - Mastoiditis [Not Recovered/Not Resolved]
  - Depression [Recovering/Resolving]

NARRATIVE: CASE EVENT DATE: 201712
